FAERS Safety Report 6775288 (Version 4)
Quarter: 2013Q2

REPORT INFORMATION
  Report Type: Report from Study
  Country: DE (occurrence: DE)
  Receive Date: 20080930
  Receipt Date: 20130531
  Transmission Date: 20140414
  Serious: Yes (Hospitalization)
  Sender: FDA-Public Use
  Company Number: DE-JNJFOC-20080903754

PATIENT
  Age: 39 Year
  Sex: Male

DRUGS (1)
  1. REMICADE [Suspect]
     Indication: CROHN^S DISEASE
     Route: 042
     Dates: end: 20080415

REACTIONS (5)
  - Neoplasm [Unknown]
  - Mesenteric abscess [Recovered/Resolved]
  - Ileal stenosis [Unknown]
  - Cholecystitis [Unknown]
  - Impaired healing [Recovered/Resolved]
